FAERS Safety Report 19294532 (Version 1)
Quarter: 2021Q2

REPORT INFORMATION
  Report Type: Report from Study
  Country: IT (occurrence: IT)
  Receive Date: 20210524
  Receipt Date: 20210524
  Transmission Date: 20210717
  Serious: Yes (Other)
  Sender: FDA-Public Use
  Company Number: IT-SHIRE-IT202026410

PATIENT

DRUGS (32)
  1. TEDUGLUTIDE [Suspect]
     Active Substance: TEDUGLUTIDE
     Dosage: 1.7 MILLIGRAM, 1X/DAY:QD
     Route: 065
     Dates: start: 20200619
  2. TEDUGLUTIDE [Suspect]
     Active Substance: TEDUGLUTIDE
     Dosage: 1.7 MILLIGRAM, 1/WEEK
     Route: 065
     Dates: start: 20201111
  3. ZINC SULFATE. [Concomitant]
     Active Substance: ZINC SULFATE
     Indication: NUTRITIONAL SUPPLEMENTATION
  4. DEPO?MEDROL [Concomitant]
     Active Substance: METHYLPREDNISOLONE ACETATE
     Indication: TRIGGER FINGER
     Dosage: 999 UNK, X1 ONE DOSE
     Route: 042
     Dates: start: 20200827, end: 20200827
  5. LEVOPRAID [LEVOSULPIRIDE] [Concomitant]
     Active Substance: LEVOSULPIRIDE
     Indication: NAUSEA
     Dosage: 25 MILLIGRAM, QD
     Route: 048
     Dates: start: 202003, end: 20200702
  6. TEDUGLUTIDE [Suspect]
     Active Substance: TEDUGLUTIDE
     Dosage: 1.7 MILLIGRAM, 1X/DAY:QD
     Route: 065
     Dates: start: 20200619
  7. TEDUGLUTIDE [Suspect]
     Active Substance: TEDUGLUTIDE
     Dosage: 1.7 MILLIGRAM, 1/WEEK
     Route: 065
     Dates: start: 20200702, end: 202011
  8. TEDUGLUTIDE [Suspect]
     Active Substance: TEDUGLUTIDE
     Dosage: 1.25 MILLIGRAM, 1X/DAY:QD
     Route: 065
     Dates: start: 20200310, end: 20200618
  9. TEDUGLUTIDE [Suspect]
     Active Substance: TEDUGLUTIDE
     Dosage: 1.7 MILLIGRAM, 1X/DAY:QD
     Route: 065
     Dates: start: 20200619
  10. TEDUGLUTIDE [Suspect]
     Active Substance: TEDUGLUTIDE
     Dosage: 1.7 MILLIGRAM, 1/WEEK
     Route: 065
     Dates: start: 20201111
  11. GAVISCON [ALGINIC ACID;ALUMINIUM HYDROXIDE GEL, DRIED;MAGNESIUM TRISIL [Concomitant]
     Active Substance: ALGINIC ACID\ALUMINUM HYDROXIDE\MAGNESIUM TRISILICATE
     Indication: ABDOMINAL PAIN UPPER
     Dosage: 1 UNIT, QD
     Route: 048
     Dates: start: 202002, end: 20200309
  12. TEDUGLUTIDE [Suspect]
     Active Substance: TEDUGLUTIDE
     Indication: SHORT-BOWEL SYNDROME
     Dosage: 2.5 MILLIGRAM, 1X/DAY:QD
     Route: 065
     Dates: start: 20200114, end: 20200309
  13. TEDUGLUTIDE [Suspect]
     Active Substance: TEDUGLUTIDE
     Dosage: 1.7 MILLIGRAM, 1X/DAY:QD
     Route: 065
     Dates: start: 20200619
  14. TEDUGLUTIDE [Suspect]
     Active Substance: TEDUGLUTIDE
     Dosage: 1.7 MILLIGRAM, 1/WEEK
     Route: 065
     Dates: start: 20201111
  15. TEDUGLUTIDE [Suspect]
     Active Substance: TEDUGLUTIDE
     Dosage: 1.7 MILLIGRAM, 1/WEEK
     Route: 065
     Dates: start: 20201111
  16. TEDUGLUTIDE [Suspect]
     Active Substance: TEDUGLUTIDE
     Dosage: 2.55 MILLIGRAM, 1/WEEK
     Route: 065
     Dates: start: 20201111
  17. TEDUGLUTIDE [Suspect]
     Active Substance: TEDUGLUTIDE
     Dosage: 2.55 MILLIGRAM, 1/WEEK
     Route: 065
     Dates: start: 20201111
  18. LANSOX [Concomitant]
     Active Substance: LANSOPRAZOLE
     Indication: GASTROINTESTINAL DISORDER THERAPY
  19. TEDUGLUTIDE [Suspect]
     Active Substance: TEDUGLUTIDE
     Indication: SHORT-BOWEL SYNDROME
     Dosage: 2.5 MILLIGRAM, 1X/DAY:QD
     Route: 065
     Dates: start: 20200114, end: 20200309
  20. TEDUGLUTIDE [Suspect]
     Active Substance: TEDUGLUTIDE
     Dosage: 1.25 MILLIGRAM, 1X/DAY:QD
     Route: 065
     Dates: start: 20200310, end: 20200618
  21. TEDUGLUTIDE [Suspect]
     Active Substance: TEDUGLUTIDE
     Indication: SHORT-BOWEL SYNDROME
     Dosage: 2.5 MILLIGRAM, 1X/DAY:QD
     Route: 065
     Dates: start: 20200114, end: 20200309
  22. TEDUGLUTIDE [Suspect]
     Active Substance: TEDUGLUTIDE
     Indication: SHORT-BOWEL SYNDROME
     Dosage: 2.5 MILLIGRAM, 1X/DAY:QD
     Route: 065
     Dates: start: 20200114, end: 20200309
  23. TEDUGLUTIDE [Suspect]
     Active Substance: TEDUGLUTIDE
     Dosage: 1.7 MILLIGRAM, 1/WEEK
     Route: 065
     Dates: start: 20200702, end: 202011
  24. TEDUGLUTIDE [Suspect]
     Active Substance: TEDUGLUTIDE
     Dosage: 1.7 MILLIGRAM, 1/WEEK
     Route: 065
     Dates: start: 20200702, end: 202011
  25. TEDUGLUTIDE [Suspect]
     Active Substance: TEDUGLUTIDE
     Dosage: 2.55 MILLIGRAM, 1/WEEK
     Route: 065
     Dates: start: 20201111
  26. TEDUGLUTIDE [Suspect]
     Active Substance: TEDUGLUTIDE
     Dosage: 2.55 MILLIGRAM, 1/WEEK
     Route: 065
     Dates: start: 20201111
  27. CLASTEON [Concomitant]
     Indication: NUTRITIONAL SUPPLEMENTATION
  28. AMOXICILLIN. [Concomitant]
     Active Substance: AMOXICILLIN
     Indication: PROPHYLAXIS
  29. TEDUGLUTIDE [Suspect]
     Active Substance: TEDUGLUTIDE
     Dosage: 1.25 MILLIGRAM, 1X/DAY:QD
     Route: 065
     Dates: start: 20200310, end: 20200618
  30. TEDUGLUTIDE [Suspect]
     Active Substance: TEDUGLUTIDE
     Dosage: 1.25 MILLIGRAM, 1X/DAY:QD
     Route: 065
     Dates: start: 20200310, end: 20200618
  31. TEDUGLUTIDE [Suspect]
     Active Substance: TEDUGLUTIDE
     Dosage: 1.7 MILLIGRAM, 1/WEEK
     Route: 065
     Dates: start: 20200702, end: 202011
  32. PROCAINE [Concomitant]
     Active Substance: PROCAINE
     Indication: TRIGGER FINGER
     Dosage: 999 UNK, X1 ONE DOSE
     Route: 042
     Dates: start: 20200827, end: 20200827

REACTIONS (5)
  - Nausea [Recovered/Resolved]
  - Abdominal pain upper [Recovered/Resolved]
  - Stoma complication [Recovered/Resolved]
  - Impaired gastric emptying [Recovered/Resolved]
  - Injection site papule [Recovered/Resolved]

NARRATIVE: CASE EVENT DATE: 20200212
